FAERS Safety Report 5124895-1 (Version None)
Quarter: 2006Q4

REPORT INFORMATION
  Report Type: 
  Country: None (occurrence: None)
  Receive Date: 20061005
  Receipt Date: 20060908
  Transmission Date: 20070319
  Serious: Yes (Death, Life-Threatening, Other)
  Sender: FDA-Public Use
  Company Number: WAES 0609BEL00009

PATIENT
  Age: 65 Year
  Sex: Male

DRUGS (1)
  1. CANCIDAS [Suspect]
     Indication: SYSTEMIC CANDIDA
     Dosage: INJ
     Dates: start: 20060120, end: 20060202

REACTIONS (3)
  - CHILLS [None]
  - PNEUMONIA NECROTISING [None]
  - RESPIRATORY FAILURE [None]
